FAERS Safety Report 5518049-4 (Version None)
Quarter: 2007Q4

REPORT INFORMATION
  Report Type: 
  Country: None (occurrence: None)
  Receive Date: 20071115
  Receipt Date: 20071101
  Transmission Date: 20080405
  Serious: Yes (Hospitalization)
  Sender: FDA-Public Use
  Company Number: TR-ELI_LILLY_AND_COMPANY-TR200711001445

PATIENT
  Age: 63 Year
  Sex: Female
  Weight: 110 kg

DRUGS (2)
  1. HUMULIN 70/30 [Suspect]
     Dosage: 40 UNK, EACH MORNING
     Route: 058
  2. HUMULIN 70/30 [Suspect]
     Dosage: 35 UNK, EACH EVENING

REACTIONS (3)
  - BLOOD GLUCOSE INCREASED [None]
  - PARALYSIS [None]
  - SYNCOPE [None]
